FAERS Safety Report 6567904-5 (Version None)
Quarter: 2010Q1

REPORT INFORMATION
  Report Type: 
  Country: None (occurrence: None)
  Receive Date: 20100203
  Receipt Date: 20100125
  Transmission Date: 20100710
  Serious: Yes (Hospitalization)
  Sender: FDA-Public Use
  Company Number: PHHY2010FR04384

PATIENT
  Sex: Male

DRUGS (12)
  1. TEGRETOL [Suspect]
     Dosage: 200 MG, QD
     Route: 048
     Dates: start: 20070502, end: 20070529
  2. TEGRETOL [Suspect]
     Dosage: 400 MG, QD
     Route: 048
     Dates: start: 20070530, end: 20070602
  3. TEGRETOL [Suspect]
     Dosage: 200 MG DAILY
     Route: 048
     Dates: start: 20070603
  4. ZYPREXA [Suspect]
     Indication: BIPOLAR DISORDER
     Dosage: 5 MG, QD
     Route: 048
     Dates: start: 20070405, end: 20070502
  5. ZYPREXA [Suspect]
     Dosage: 10 MG, QD
     Route: 048
     Dates: start: 20070502, end: 20070602
  6. ZYPREXA [Suspect]
     Dosage: 5 MG DAILY
     Route: 048
     Dates: start: 20070603
  7. PRAZEPAM [Concomitant]
     Indication: ANXIETY
     Dosage: 10 MG, QD
     Route: 048
     Dates: start: 20070326
  8. IMOVANE [Concomitant]
     Indication: INSOMNIA
     Dosage: 7.5 MG, QD
     Route: 048
     Dates: start: 20070326, end: 20070501
  9. SULFARLEM S [Concomitant]
     Indication: APTYALISM
     Dosage: 75 MG, QD
     Route: 048
     Dates: start: 20070413, end: 20070429
  10. SULFARLEM S [Concomitant]
     Dosage: 6 DF, QD
     Route: 048
  11. PARKINANE [Concomitant]
     Indication: PARKINSON'S DISEASE
     Dosage: 5 MG, QD
     Route: 048
     Dates: start: 20070413, end: 20070501
  12. PARKINANE [Concomitant]
     Dosage: 10 MG DAILY
     Route: 048
     Dates: start: 20070502

REACTIONS (1)
  - DYSPHEMIA [None]
